FAERS Safety Report 6247209-2 (Version None)
Quarter: 2009Q2

REPORT INFORMATION
  Report Type: 
  Country: None (occurrence: None)
  Receive Date: 20090624
  Receipt Date: 20090624
  Transmission Date: 20091009
  Serious: Yes (Other)
  Sender: FDA-Public Use
  Company Number: None

PATIENT
  Age: 66 Year
  Sex: Female
  Weight: 53.978 kg

DRUGS (2)
  1. VIGAMOX [Suspect]
     Indication: CATARACT
     Dosage: 1 DROP 4 TIMES PER DAY OPHTHALMIC
     Route: 047
     Dates: start: 20090614, end: 20090617
  2. NEVANAC [Concomitant]

REACTIONS (7)
  - DRUG HYPERSENSITIVITY [None]
  - ERYTHEMA [None]
  - EYE SWELLING [None]
  - FEELING ABNORMAL [None]
  - PRURITUS [None]
  - SWELLING FACE [None]
  - URTICARIA [None]
